FAERS Safety Report 8340751-X (Version None)
Quarter: 2012Q2

REPORT INFORMATION
  Report Type: 
  Country: None (occurrence: None)
  Receive Date: 20120507
  Receipt Date: 20120424
  Transmission Date: 20120825
  Serious: Yes (Other)
  Sender: FDA-Public Use
  Company Number: DE-BIOGENIDEC-2012BI014390

PATIENT
  Age: 25 Year
  Sex: Male
  Weight: 75 kg

DRUGS (2)
  1. AVONEX [Suspect]
     Indication: MULTIPLE SCLEROSIS
     Route: 030
     Dates: start: 20111201, end: 20120417
  2. IBUPROFEN TABLETS [Concomitant]
     Indication: PROPHYLAXIS
     Dates: start: 20111201

REACTIONS (1)
  - SYNCOPE [None]
